FAERS Safety Report 5098649-9 (Version None)
Quarter: 2006Q3

REPORT INFORMATION
  Report Type: 
  Country: None (occurrence: None)
  Receive Date: 20060907
  Receipt Date: 20060830
  Transmission Date: 20061208
  Serious: Yes (Other)
  Sender: FDA-Public Use
  Company Number: US-BRISTOL-MYERS SQUIBB COMPANY-13493630

PATIENT
  Age: 61 Year
  Sex: Male
  Weight: 91 kg

DRUGS (8)
  1. DEFINITY [Suspect]
     Indication: STRESS ECHOCARDIOGRAM
     Route: 040
     Dates: start: 20060830, end: 20060830
  2. DOBUTAMINE HCL [Concomitant]
     Dates: start: 20060830
  3. ZOLOFT [Concomitant]
  4. SINGULAIR [Concomitant]
  5. MULTI-VITAMIN [Concomitant]
  6. OXYCONTIN [Concomitant]
  7. OXYCODONE HCL [Concomitant]
  8. CLONAZEPAM [Concomitant]

REACTIONS (3)
  - BACK PAIN [None]
  - CONVULSION [None]
  - VENTRICULAR EXTRASYSTOLES [None]
